FAERS Safety Report 20354420 (Version 1)
Quarter: 2022Q1

REPORT INFORMATION
  Report Type: Spontaneous
  Country: FR (occurrence: FR)
  Receive Date: 20220120
  Receipt Date: 20220120
  Transmission Date: 20220423
  Serious: Yes (Death)
  Sender: FDA-Public Use
  Company Number: FR-ALKEM LABORATORIES LIMITED-FR-ALKEM-2021-08381

PATIENT
  Age: 55 Year
  Sex: Female

DRUGS (1)
  1. AZATHIOPRINE [Suspect]
     Active Substance: AZATHIOPRINE
     Indication: Aortic valve disease
     Dosage: UNK
     Route: 065

REACTIONS (1)
  - Drug ineffective [Fatal]
